FAERS Safety Report 4445788-9 (Version None)
Quarter: 2004Q3

REPORT INFORMATION
  Report Type: 
  Country: None (occurrence: None)
  Receive Date: 20040903
  Receipt Date: 20040824
  Transmission Date: 20050211
  Serious: Yes (Hospitalization)
  Sender: FDA-Public Use
  Company Number: 2004-BP-07277AU

PATIENT
  Age: 89 Year
  Sex: Female

DRUGS (7)
  1. MOBIC [Suspect]
     Indication: ARTHRITIS
     Dosage: 7.5 MG (7.5 MG, ONE TABLET AS NECESSARY)
     Route: 048
     Dates: start: 20030404, end: 20040413
  2. ALEVE [Suspect]
     Indication: PAIN
     Dosage: NR (NR, ONE TABLET AS NECESSARY)
     Route: 048
  3. CALTRATE (CALCIUM CARBONATE) [Concomitant]
  4. ATENOLOL [Concomitant]
  5. ZANTAC [Concomitant]
  6. MURELAX (OXAZEPAM) [Concomitant]
  7. PANAMAX (PARACETAMOL) [Concomitant]

REACTIONS (1)
  - NEPHROTIC SYNDROME [None]
